FAERS Safety Report 12082418 (Version 2)
Quarter: 2016Q2

REPORT INFORMATION
  Report Type: Report from Study
  Country: US (occurrence: US)
  Receive Date: 20160217
  Receipt Date: 20160607
  Transmission Date: 20160815
  Serious: No
  Sender: FDA-Public Use
  Company Number: US-AMGEN-USASL2016016864

PATIENT
  Age: 23 Year
  Sex: Male

DRUGS (1)
  1. ENBREL [Suspect]
     Active Substance: ETANERCEPT
     Indication: PRODUCT USED FOR UNKNOWN INDICATION
     Dosage: UNK
     Route: 065
     Dates: start: 20160115

REACTIONS (5)
  - Skin exfoliation [Unknown]
  - Chillblains [Unknown]
  - Pruritus [Unknown]
  - Nodule [Unknown]
  - Erythema [Unknown]

NARRATIVE: CASE EVENT DATE: 2016
